FAERS Safety Report 8469772-3 (Version None)
Quarter: 2012Q2

REPORT INFORMATION
  Report Type: 
  Country: None (occurrence: None)
  Receive Date: 20120626
  Receipt Date: 20120621
  Transmission Date: 20120825
  Serious: Yes (Other)
  Sender: FDA-Public Use
  Company Number: US-MERCK-1206USA03603

PATIENT
  Age: 64 Year
  Sex: Female

DRUGS (3)
  1. JANUVIA [Suspect]
     Indication: TYPE 2 DIABETES MELLITUS
     Route: 048
     Dates: start: 20100501, end: 20111001
  2. METFORMIN [Concomitant]
     Route: 065
  3. JANUVIA [Suspect]
     Route: 048
     Dates: start: 20120501

REACTIONS (2)
  - COLON CANCER [None]
  - ABDOMINAL DISTENSION [None]
